FAERS Safety Report 24082893 (Version 1)
Quarter: 2024Q3

REPORT INFORMATION
  Report Type: Spontaneous
  Country: CN (occurrence: CN)
  Receive Date: 20240712
  Receipt Date: 20240712
  Transmission Date: 20241017
  Serious: Yes (Death)
  Sender: ROCHE
  Company Number: CN-ROCHE-10000002949

PATIENT
  Age: 49 Year
  Sex: Female

DRUGS (19)
  1. BEVACIZUMAB [Suspect]
     Active Substance: BEVACIZUMAB
     Indication: Ovarian epithelial cancer
     Dosage: ONE CYCLE
     Route: 065
     Dates: start: 202103
  2. BEVACIZUMAB [Suspect]
     Active Substance: BEVACIZUMAB
     Dosage: FOUR CYCLES
     Route: 065
     Dates: start: 202108, end: 202110
  3. BEVACIZUMAB [Suspect]
     Active Substance: BEVACIZUMAB
     Dosage: SIX CYCLES
     Route: 065
     Dates: start: 202206, end: 202210
  4. BEVACIZUMAB [Suspect]
     Active Substance: BEVACIZUMAB
     Dosage: ONE CYCLE, ON DAY 1
     Route: 065
     Dates: start: 202302
  5. PACLITAXEL [Suspect]
     Active Substance: PACLITAXEL
     Indication: Ovarian epithelial cancer
     Dosage: ON DAY 1
     Route: 065
     Dates: start: 201911, end: 201912
  6. PACLITAXEL [Suspect]
     Active Substance: PACLITAXEL
     Dosage: ON DAY 1, THREE CYCLES
     Route: 065
     Dates: start: 202001, end: 202003
  7. PACLITAXEL [Suspect]
     Active Substance: PACLITAXEL
     Dosage: ON DAY 1, THREE CYCLES
     Route: 065
     Dates: start: 202004, end: 202006
  8. PACLITAXEL [Suspect]
     Active Substance: PACLITAXEL
     Dosage: ON DAY 1, FOUR CYCLES
     Route: 065
     Dates: start: 202108, end: 202110
  9. PACLITAXEL [Suspect]
     Active Substance: PACLITAXEL
     Dosage: ON DAY 1, SIX CYCLES
     Route: 065
     Dates: start: 202206, end: 202210
  10. CARBOPLATIN [Suspect]
     Active Substance: CARBOPLATIN
     Indication: Ovarian epithelial cancer
     Dosage: AREA UNDER THE CURVE (AUC)=5)
     Route: 065
     Dates: start: 201911, end: 201912
  11. CARBOPLATIN [Suspect]
     Active Substance: CARBOPLATIN
     Dosage: AREA UNDER THE CURVE (AUC)=5)
     Route: 065
     Dates: start: 202004, end: 202006
  12. CARBOPLATIN [Suspect]
     Active Substance: CARBOPLATIN
     Dosage: AREA UNDER THE CURVE (AUC)=5)
     Route: 065
     Dates: start: 202103
  13. CARBOPLATIN [Suspect]
     Active Substance: CARBOPLATIN
     Dosage: AREA UNDER THE CURVE (AUC)=5), FOUR CYCLES
     Route: 065
     Dates: start: 202108, end: 202110
  14. CARBOPLATIN [Suspect]
     Active Substance: CARBOPLATIN
     Dosage: AREA UNDER THE CURVE (AUC)=5), ON DAY 1 SIX CYCLES
     Route: 065
     Dates: start: 202206, end: 202210
  15. CISPLATIN [Suspect]
     Active Substance: CISPLATIN
     Indication: Ovarian epithelial cancer
     Dosage: THREE CYCLES, ON DAY 2
     Route: 065
     Dates: start: 202001, end: 202003
  16. PACLITAXEL [Suspect]
     Active Substance: PACLITAXEL
     Indication: Ovarian epithelial cancer
     Dosage: ON DAY 1, ONE CYCLE
     Route: 065
     Dates: start: 202103
  17. FLUZOPARIB [Suspect]
     Active Substance: FLUZOPARIB
     Indication: Ovarian epithelial cancer
     Route: 050
     Dates: start: 202205
  18. FLUZOPARIB [Suspect]
     Active Substance: FLUZOPARIB
     Route: 048
     Dates: start: 202302
  19. DOCETAXEL [Concomitant]
     Active Substance: DOCETAXEL\DOCETAXEL ANHYDROUS
     Indication: Ovarian epithelial cancer
     Dosage: ON DAY 1, ONE CYCLE
     Route: 065
     Dates: start: 202302

REACTIONS (4)
  - Disease progression [Fatal]
  - Gastrointestinal disorder [Unknown]
  - Metastases to skin [Fatal]
  - Drug ineffective [Unknown]

NARRATIVE: CASE EVENT DATE: 20220501
